FAERS Safety Report 25831528 (Version 1)
Quarter: 2025Q3

REPORT INFORMATION
  Report Type: Spontaneous
  Country: US (occurrence: US)
  Receive Date: 20250922
  Receipt Date: 20250922
  Transmission Date: 20251021
  Serious: Yes (Other)
  Sender: Kenvue
  Company Number: US-KENVUE-20250910107

PATIENT
  Sex: Female

DRUGS (1)
  1. DIMETHICONE [Suspect]
     Active Substance: DIMETHICONE
     Indication: Product used for unknown indication
     Route: 061

REACTIONS (2)
  - Application site eczema [Recovering/Resolving]
  - Application site hypersensitivity [Recovering/Resolving]
